FAERS Safety Report 5256644-0 (Version None)
Quarter: 2007Q1

REPORT INFORMATION
  Report Type: 
  Country: None (occurrence: None)
  Receive Date: 20070306
  Receipt Date: 20070226
  Transmission Date: 20070707
  Serious: Yes (Hospitalization, Other)
  Sender: FDA-Public Use
  Company Number: US-BRISTOL-MYERS SQUIBB COMPANY-13692942

PATIENT
  Age: 43 Year
  Sex: Female
  Weight: 79 kg

DRUGS (3)
  1. CETUXIMAB [Suspect]
     Indication: SQUAMOUS CELL CARCINOMA
     Dates: start: 20070212, end: 20070212
  2. CISPLATIN [Suspect]
     Indication: SQUAMOUS CELL CARCINOMA
     Dates: start: 20061020, end: 20061020
  3. RADIATION THERAPY [Suspect]
     Indication: SQUAMOUS CELL CARCINOMA
     Dates: start: 20070102, end: 20070215

REACTIONS (5)
  - DEHYDRATION [None]
  - DEPRESSION [None]
  - NECK PAIN [None]
  - ORAL PAIN [None]
  - STOMATITIS [None]
